FAERS Safety Report 9060707 (Version 1)
Quarter: 2013Q1

REPORT INFORMATION
  Report Type: Spontaneous
  Country: FI (occurrence: FI)
  Receive Date: 20130204
  Receipt Date: 20130204
  Transmission Date: 20140127
  Serious: Yes (Hospitalization, Other)
  Sender: FDA-Public Use
  Company Number: FI-ROCHE-1186517

PATIENT
  Age: 49 Year
  Sex: Male

DRUGS (6)
  1. ZELBORAF [Suspect]
     Indication: METASTATIC MALIGNANT MELANOMA
     Route: 048
     Dates: start: 20121017
  2. ZELBORAF [Suspect]
     Route: 048
     Dates: end: 20121211
  3. DACARBAZINE [Concomitant]
     Route: 065
     Dates: start: 201111
  4. DOCETAXEL [Concomitant]
     Route: 065
     Dates: start: 201202
  5. CARBOPLATIN [Concomitant]
     Route: 065
     Dates: start: 201202
  6. TEMODAL [Concomitant]
     Route: 065
     Dates: start: 201208

REACTIONS (5)
  - Cellulitis [Unknown]
  - Rash [Unknown]
  - Lymphadenopathy [Unknown]
  - Arthralgia [Unknown]
  - Haemoglobin decreased [Unknown]
